FAERS Safety Report 5673990-7 (Version None)
Quarter: 2008Q1

REPORT INFORMATION
  Report Type: 
  Country: None (occurrence: None)
  Receive Date: 20080319
  Receipt Date: 20080319
  Transmission Date: 20080703
  Serious: Yes (Hospitalization)
  Sender: FDA-Public Use
  Company Number: None

PATIENT
  Age: 83 Year
  Sex: Female
  Weight: 57 kg

DRUGS (8)
  1. DIGOXIN [Suspect]
     Indication: ATRIAL FIBRILLATION
     Dosage: 0.125 MG  DAILY  PO  (DURATION: CHRONIC)
     Route: 048
  2. ALBUTEROL [Concomitant]
  3. CA CARBONATE [Concomitant]
  4. CARDIZEM CD [Concomitant]
  5. ADVAIR DISKUS 100/50 [Concomitant]
  6. PREDNISONE TAB [Concomitant]
  7. LASIX [Concomitant]
  8. WARFARIN SODIUM [Concomitant]

REACTIONS (2)
  - DEHYDRATION [None]
  - DRUG LEVEL INCREASED [None]
